FAERS Safety Report 9498875 (Version 1)
Quarter: 2013Q3

REPORT INFORMATION
  Report Type: Spontaneous
  Country: US (occurrence: None)
  Receive Date: 20130830
  Receipt Date: 20130830
  Transmission Date: 20140515
  Serious: Yes (Death, Life-Threatening, Hospitalization)
  Sender: FDA-Public Use
  Company Number: 1713747-2013-99942

PATIENT
  Age: 56 Year
  Sex: 0
  Weight: 58.6 kg

DRUGS (5)
  1. SODIUM CHLORIDE 0.9% [Suspect]
     Indication: HAEMODIALYSIS
  2. FRESENIUS 2008T HEMODIALYSIS MACHINE [Concomitant]
  3. UNKNOWN FRESENIUS TUBING [Concomitant]
  4. UNKNOWN FRESENIUS DIALYZER [Concomitant]
  5. CONCENTRATES [Concomitant]

REACTIONS (2)
  - Unresponsive to stimuli [None]
  - Cardiac arrest [None]
